FAERS Safety Report 6012622-5 (Version None)
Quarter: 2008Q4

REPORT INFORMATION
  Report Type: 
  Country: None (occurrence: None)
  Receive Date: 20081217
  Receipt Date: 20081203
  Transmission Date: 20090506
  Serious: Yes (Other)
  Sender: FDA-Public Use
  Company Number: 2008S1021584

PATIENT
  Age: 73 Year
  Sex: Female

DRUGS (4)
  1. ENDEP [Suspect]
     Indication: ANXIETY
     Dosage: 5 MG;AT BEDTIME; ORAL
     Route: 048
     Dates: start: 20081125, end: 20081128
  2. XANAX [Concomitant]
  3. CARDIZEM [Concomitant]
  4. NEXIUM [Concomitant]

REACTIONS (1)
  - DEPRESSION [None]
